FAERS Safety Report 8096152-5 (Version None)
Quarter: 2012Q1

REPORT INFORMATION
  Report Type: 
  Country: None (occurrence: None)
  Receive Date: 20120131
  Receipt Date: 20120125
  Transmission Date: 20120608
  Serious: Yes (Death)
  Sender: FDA-Public Use
  Company Number: JP-GLAXOSMITHKLINE-B0775023A

PATIENT
  Age: 32 Year
  Sex: Female

DRUGS (6)
  1. CYMBALTA [Concomitant]
     Dosage: 40MG PER DAY
     Route: 048
  2. ESTAZOLAM [Concomitant]
     Dosage: 2MG PER DAY
     Route: 048
  3. DIAZEPAM [Concomitant]
     Route: 065
  4. PAXIL [Suspect]
     Indication: DEPRESSION
     Dosage: 40MG PER DAY
     Route: 048
  5. PROTHIADEN [Suspect]
     Dosage: 100MG PER DAY
     Route: 048
  6. CLOXAZOLAM [Concomitant]
     Dosage: 2MG PER DAY
     Route: 048

REACTIONS (11)
  - PULSELESS ELECTRICAL ACTIVITY [None]
  - ARRHYTHMIA [None]
  - BUNDLE BRANCH BLOCK RIGHT [None]
  - DRUG INTERACTION [None]
  - VENTRICULAR FLUTTER [None]
  - VENTRICULAR FIBRILLATION [None]
  - COMPLETED SUICIDE [None]
  - MULTIPLE DRUG OVERDOSE INTENTIONAL [None]
  - DEATH [None]
  - CONVULSION [None]
  - ELECTROCARDIOGRAM QRS COMPLEX PROLONGED [None]
